FAERS Safety Report 5498757-4 (Version None)
Quarter: 2007Q4

REPORT INFORMATION
  Report Type: 
  Country: None (occurrence: None)
  Receive Date: 20071026
  Receipt Date: 20070713
  Transmission Date: 20080405
  Serious: No
  Sender: FDA-Public Use
  Company Number: A0664032A

PATIENT
  Age: 42 Year
  Sex: Female

DRUGS (1)
  1. ADVAIR DISKUS 100/50 [Suspect]
     Indication: BRONCHITIS
     Dosage: 1PUFF TWICE PER DAY
     Route: 055
     Dates: start: 20070601, end: 20070616

REACTIONS (4)
  - DYSPNOEA [None]
  - ERYTHEMA [None]
  - LARYNGOSPASM [None]
  - SPEECH DISORDER [None]
